FAERS Safety Report 8909913 (Version 3)
Quarter: 2013Q2

REPORT INFORMATION
  Report Type: Report from Study
  Country: JP (occurrence: JP)
  Receive Date: 20121114
  Receipt Date: 20130404
  Transmission Date: 20140414
  Serious: Yes (Other)
  Sender: FDA-Public Use
  Company Number: JP-PFIZER INC-2012282596

PATIENT
  Age: 89 Year
  Sex: Male
  Weight: 48 kg

DRUGS (11)
  1. FOSPHENYTOIN SODIUM [Suspect]
     Indication: EPILEPSY
     Dosage: 15 MG/KG, UNK
     Dates: start: 20121030, end: 2012
  2. SEROQUEL [Concomitant]
     Indication: BIPOLAR I DISORDER
     Dosage: 0.7 G, UNK
     Route: 048
  3. SENNOSIDE A [Concomitant]
     Indication: CONSTIPATION
     Dosage: 8% 0.75 G
     Route: 048
     Dates: end: 20121031
  4. TAKEPRON [Concomitant]
     Indication: PROPHYLAXIS
     Dosage: 15 MG, UNK
     Route: 048
  5. DAI-KENCHU-TO [Concomitant]
     Indication: CONSTIPATION
     Dosage: 2 PACKETS, UNK
     Route: 048
  6. NEO DOPASTON [Concomitant]
     Indication: BIPOLAR I DISORDER
     Dosage: 200 MG, UNK
     Route: 048
     Dates: end: 20121031
  7. BUFFERIN [Concomitant]
     Dosage: 81 MG, UNK
     Route: 048
     Dates: end: 20121031
  8. FEROTYM [Concomitant]
     Indication: ANAEMIA
     Dosage: 100 MG, UNK
     Route: 048
  9. MAGMITT [Concomitant]
     Indication: CONSTIPATION
     Dosage: 1000 MG, UNK
     Route: 048
  10. RIVOTRIL [Concomitant]
     Indication: EPILEPSY
     Dosage: 1 G, UNK
     Route: 048
  11. RIVOTRIL [Concomitant]
     Dosage: 2 G, UNK
     Route: 048

REACTIONS (4)
  - Delirium [Recovering/Resolving]
  - Agitation [None]
  - Anaemia [None]
  - Constipation [None]
